FAERS Safety Report 9515517 (Version 1)
Quarter: 2013Q3

REPORT INFORMATION
  Report Type: Spontaneous
  Country: FR (occurrence: FR)
  Receive Date: 20130911
  Receipt Date: 20130911
  Transmission Date: 20140515
  Serious: Yes (Life-Threatening, Hospitalization)
  Sender: FDA-Public Use
  Company Number: PHHY2013FR099593

PATIENT
  Age: 43 Year
  Sex: Male

DRUGS (2)
  1. ACLASTA [Suspect]
     Indication: COMPLEX REGIONAL PAIN SYNDROME
     Dosage: 5 MG, UNK
     Route: 042
     Dates: start: 20091119
  2. LAMALINE [Concomitant]
     Dosage: 3 DF, DAILY
     Route: 048

REACTIONS (2)
  - Portal vein thrombosis [Not Recovered/Not Resolved]
  - Abdominal pain [Not Recovered/Not Resolved]
